FAERS Safety Report 24849652 (Version 2)
Quarter: 2025Q1

REPORT INFORMATION
  Report Type: Report from Study
  Country: US (occurrence: US)
  Receive Date: 20250116
  Receipt Date: 20250321
  Transmission Date: 20250409
  Serious: Yes (Other)
  Sender: NOVARTIS
  Company Number: US-002147023-NVSC2025US005864

PATIENT
  Sex: Female

DRUGS (1)
  1. KESIMPTA [Suspect]
     Active Substance: OFATUMUMAB
     Indication: Product used for unknown indication
     Route: 065

REACTIONS (6)
  - Pneumonia [Unknown]
  - Pyrexia [Unknown]
  - Illness [Unknown]
  - Hyperhidrosis [Unknown]
  - Parainfluenzae virus infection [Unknown]
  - Pharyngitis streptococcal [Unknown]
